FAERS Safety Report 13411757 (Version 2)
Quarter: 2017Q4

REPORT INFORMATION
  Report Type: Spontaneous
  Country: US (occurrence: US)
  Receive Date: 20170406
  Receipt Date: 20171123
  Transmission Date: 20180320
  Serious: No
  Sender: FDA-Public Use
  Company Number: US-JNJFOC-20170303431

PATIENT
  Sex: Male

DRUGS (14)
  1. RISPERDAL [Suspect]
     Active Substance: RISPERIDONE
     Indication: BORDERLINE PERSONALITY DISORDER
     Route: 048
     Dates: start: 20131211, end: 20140210
  2. RISPERDAL M-TAB [Suspect]
     Active Substance: RISPERIDONE
     Indication: BORDERLINE PERSONALITY DISORDER
     Route: 048
     Dates: start: 20090225
  3. RISPERIDONE. [Suspect]
     Active Substance: RISPERIDONE
     Indication: AFFECTIVE DISORDER
     Dosage: 2 MG AND 3 MG
     Route: 048
     Dates: start: 20120409, end: 2013
  4. RISPERDAL [Suspect]
     Active Substance: RISPERIDONE
     Indication: AFFECTIVE DISORDER
     Route: 048
     Dates: start: 20120409, end: 20130710
  5. RISPERDAL [Suspect]
     Active Substance: RISPERIDONE
     Indication: BORDERLINE PERSONALITY DISORDER
     Route: 048
     Dates: start: 20110509, end: 20111128
  6. RISPERIDONE. [Suspect]
     Active Substance: RISPERIDONE
     Indication: BORDERLINE PERSONALITY DISORDER
     Dosage: 2 MG AND 3 MG
     Route: 048
     Dates: start: 20120409, end: 2013
  7. RISPERDAL [Suspect]
     Active Substance: RISPERIDONE
     Indication: BORDERLINE PERSONALITY DISORDER
     Route: 048
     Dates: start: 20120409, end: 20130710
  8. RISPERDAL [Suspect]
     Active Substance: RISPERIDONE
     Indication: AFFECTIVE DISORDER
     Route: 048
     Dates: start: 20110509, end: 20111128
  9. RISPERDAL M-TAB [Suspect]
     Active Substance: RISPERIDONE
     Indication: AFFECTIVE DISORDER
     Route: 048
     Dates: start: 20090225
  10. RISPERDAL [Suspect]
     Active Substance: RISPERIDONE
     Indication: AFFECTIVE DISORDER
     Route: 048
     Dates: start: 20090114, end: 20090219
  11. RISPERDAL [Suspect]
     Active Substance: RISPERIDONE
     Indication: AFFECTIVE DISORDER
     Route: 048
     Dates: start: 20090219
  12. RISPERDAL [Suspect]
     Active Substance: RISPERIDONE
     Indication: BORDERLINE PERSONALITY DISORDER
     Route: 048
     Dates: start: 20090219
  13. RISPERDAL [Suspect]
     Active Substance: RISPERIDONE
     Indication: AFFECTIVE DISORDER
     Route: 048
     Dates: start: 20131211, end: 20140210
  14. RISPERDAL [Suspect]
     Active Substance: RISPERIDONE
     Indication: BORDERLINE PERSONALITY DISORDER
     Route: 048
     Dates: start: 20090114, end: 20090219

REACTIONS (2)
  - Emotional disorder [Unknown]
  - Gynaecomastia [Unknown]
